FAERS Safety Report 9113030 (Version 1)
Quarter: 2013Q1

REPORT INFORMATION
  Report Type: Report from Study
  Country: JP (occurrence: JP)
  Receive Date: 20130211
  Receipt Date: 20130211
  Transmission Date: 20140127
  Serious: Yes (Hospitalization)
  Sender: FDA-Public Use
  Company Number: JP-PFIZER INC-2011025242

PATIENT
  Age: 41 Year
  Sex: Female
  Weight: 54.8 kg

DRUGS (5)
  1. BOSUTINIB [Suspect]
     Indication: CHRONIC MYELOID LEUKAEMIA
     Dosage: 400 MG, 1X/DAY
     Route: 048
     Dates: start: 20100118, end: 20110203
  2. FEXOFENADINE HYDROCHLORIDE [Concomitant]
     Indication: RASH
     Dosage: 60 MG, 2X/DAY
     Route: 048
     Dates: start: 20100811
  3. HEPARINOID [Concomitant]
     Indication: DRY SKIN
     Dosage: UNK, AS NEEDED
     Route: 062
     Dates: start: 20100325
  4. CLINDAMYCIN PHOSPHATE [Concomitant]
     Indication: ACNE
     Dosage: UNK, AS NEEDED
     Route: 062
     Dates: start: 20100608
  5. POVIDONE-IODINE [Concomitant]
     Indication: PERIODONTITIS
     Dosage: UNK, AS NEEDED
     Dates: start: 20100810

REACTIONS (2)
  - Pertussis [Recovered/Resolved]
  - Fatigue [Recovered/Resolved]
